FAERS Safety Report 17828611 (Version 1)
Quarter: 2020Q2

REPORT INFORMATION
  Report Type: Spontaneous
  Country: US (occurrence: US)
  Receive Date: 20200527
  Receipt Date: 20200527
  Transmission Date: 20200714
  Serious: No
  Sender: FDA-Public Use
  Company Number: US-FAGRON STERILE SERVICES-2084207

PATIENT

DRUGS (1)
  1. SODIUM CITRATE SOLUTION 4% 30ML MULTIPLE DOSE VIAL [Suspect]
     Active Substance: SODIUM CITRATE
     Dates: start: 20200413

REACTIONS (1)
  - Anaphylactic reaction [Recovered/Resolved]

NARRATIVE: CASE EVENT DATE: 20200413
